FAERS Safety Report 6917624-X (Version None)
Quarter: 2010Q3

REPORT INFORMATION
  Report Type: 
  Country: None (occurrence: None)
  Receive Date: 20100810
  Receipt Date: 20080915
  Transmission Date: 20110219
  Serious: Yes (Other)
  Sender: FDA-Public Use
  Company Number: US-WYE-H04971008

PATIENT
  Sex: Female
  Weight: 41.27 kg

DRUGS (8)
  1. PROTONIX [Suspect]
     Route: 042
     Dates: start: 20080528, end: 20080528
  2. ONDANSETRON [Concomitant]
     Route: 042
     Dates: start: 20080528, end: 20080528
  3. ZOSYN [Concomitant]
     Route: 042
     Dates: start: 20080528, end: 20080528
  4. INSULIN [Concomitant]
     Dosage: ^SLIDING SCALE^
  5. ENALAPRIL MALEATE [Concomitant]
     Dosage: UNKNOWN
  6. LEVOTHYROXINE SODIUM [Concomitant]
     Dosage: UNKNOWN
  7. LEVOFLOXACIN [Concomitant]
     Route: 042
     Dates: start: 20080528, end: 20080528
  8. MORPHINE [Concomitant]
     Route: 042
     Dates: start: 20080528, end: 20080528

REACTIONS (3)
  - BLOOD PRESSURE DECREASED [None]
  - DIZZINESS [None]
  - HYPERHIDROSIS [None]
